FAERS Safety Report 13853235 (Version 2)
Quarter: 2017Q3

REPORT INFORMATION
  Report Type: Report from Study
  Country: US (occurrence: US)
  Receive Date: 20170809
  Receipt Date: 20170811
  Transmission Date: 20171127
  Serious: Yes (Hospitalization)
  Sender: FDA-Public Use
  Company Number: US-009507513-1708USA003599

PATIENT
  Age: 69 Year
  Sex: Female
  Weight: 103.4 kg

DRUGS (2)
  1. DEXAMETHASONE. [Suspect]
     Active Substance: DEXAMETHASONE
     Indication: PLASMA CELL MYELOMA
     Dosage: 40 MG, ON VELCADE DAYS
     Route: 048
     Dates: start: 20141110, end: 201503
  2. VELCADE [Suspect]
     Active Substance: BORTEZOMIB
     Indication: PLASMA CELL MYELOMA
     Dosage: 1.3 MG/M2, BIW
     Route: 058
     Dates: start: 20141110, end: 201503

REACTIONS (1)
  - Radial nerve palsy [Recovered/Resolved]

NARRATIVE: CASE EVENT DATE: 20150318
